FAERS Safety Report 13878099 (Version 1)
Quarter: 2017Q3

REPORT INFORMATION
  Report Type: Spontaneous
  Country: FR (occurrence: FR)
  Receive Date: 20170817
  Receipt Date: 20170817
  Transmission Date: 20171127
  Serious: Yes (Other)
  Sender: FDA-Public Use
  Company Number: FR-BAYER-2017-155328

PATIENT
  Age: 44 Year
  Sex: Female

DRUGS (1)
  1. MIRENA [Suspect]
     Active Substance: LEVONORGESTREL
     Indication: MENORRHAGIA
     Dosage: 20 MCG/24HR, CONT
     Route: 015
     Dates: start: 20160912, end: 20170615

REACTIONS (11)
  - Vaginal discharge [Unknown]
  - Myalgia [Unknown]
  - Adnexa uteri pain [Unknown]
  - Arthralgia [Unknown]
  - Back pain [Unknown]
  - Hypertrichosis [Unknown]
  - Menorrhagia [Unknown]
  - Abdominal pain [Unknown]
  - Ovarian cyst [Unknown]
  - Asthenia [Unknown]
  - Breast pain [Unknown]

NARRATIVE: CASE EVENT DATE: 201609
